FAERS Safety Report 5388492-5 (Version None)
Quarter: 2007Q3

REPORT INFORMATION
  Report Type: 
  Country: None (occurrence: None)
  Receive Date: 20070716
  Receipt Date: 20070709
  Transmission Date: 20080115
  Serious: Yes (Hospitalization, Other)
  Sender: FDA-Public Use
  Company Number: US-ELI_LILLY_AND_COMPANY-US200707001947

PATIENT
  Sex: Male

DRUGS (1)
  1. HUMALOG [Suspect]

REACTIONS (5)
  - ACIDOSIS [None]
  - BLOOD GLUCOSE INCREASED [None]
  - INTERVERTEBRAL DISC OPERATION [None]
  - MALAISE [None]
  - MEMORY IMPAIRMENT [None]
